FAERS Safety Report 7408056-9 (Version None)
Quarter: 2011Q2

REPORT INFORMATION
  Report Type: 
  Country: None (occurrence: None)
  Receive Date: 20110412
  Receipt Date: 20110330
  Transmission Date: 20111010
  Serious: No
  Sender: FDA-Public Use
  Company Number: US-PFIZER INC-2010057105

PATIENT
  Sex: Male
  Weight: 105.22 kg

DRUGS (8)
  1. SPIRIVA [Concomitant]
     Indication: CHRONIC OBSTRUCTIVE PULMONARY DISEASE
     Dosage: UNK
  2. ZOLOFT [Suspect]
     Indication: DEPRESSION
     Dosage: UNK
  3. EFFEXOR XR [Suspect]
     Indication: DEPRESSION
     Dosage: 225 MG, DAILY
     Dates: end: 20100401
  4. PLAVIX [Concomitant]
     Dosage: UNK
  5. WELLBUTRIN [Concomitant]
     Dosage: UNK
  6. FLONASE [Concomitant]
     Dosage: UNK
     Route: 045
  7. HYZAAR [Concomitant]
     Dosage: UNK
  8. SIMVASTATIN [Concomitant]
     Dosage: UNK

REACTIONS (12)
  - FATIGUE [None]
  - FEELING ABNORMAL [None]
  - URTICARIA [None]
  - NASAL CONGESTION [None]
  - ARTHRALGIA [None]
  - DECREASED APPETITE [None]
  - PAIN IN JAW [None]
  - HEADACHE [None]
  - HYPERSENSITIVITY [None]
  - WEIGHT DECREASED [None]
  - PAIN IN EXTREMITY [None]
  - MALAISE [None]
